FAERS Safety Report 9942238 (Version 2)
Quarter: 2014Q1

REPORT INFORMATION
  Report Type: Report from Study
  Country: US (occurrence: US)
  Receive Date: 20140303
  Receipt Date: 20140303
  Transmission Date: 20141002
  Serious: No
  Sender: FDA-Public Use
  Company Number: US-ABBVIE-12P-163-1027509-00

PATIENT
  Age: 48 Year
  Sex: Female

DRUGS (1)
  1. HUMIRA [Suspect]
     Indication: PSORIATIC ARTHROPATHY
     Route: 058
     Dates: start: 201211

REACTIONS (5)
  - Respiratory tract congestion [Unknown]
  - Nasopharyngitis [Unknown]
  - Pruritus [Unknown]
  - Bronchitis [Recovering/Resolving]
  - Pain [Recovering/Resolving]
